FAERS Safety Report 23222690 (Version 1)
Quarter: 2023Q4

REPORT INFORMATION
  Report Type: Spontaneous
  Country: US (occurrence: US)
  Receive Date: 20231123
  Receipt Date: 20231123
  Transmission Date: 20240110
  Serious: No
  Sender: FDA-Public Use
  Company Number: US-KERYX BIOPHARMACEUTICALS INC.-US-AKEB-23-000999

PATIENT
  Age: 43 Year
  Sex: Male

DRUGS (6)
  1. AURYXIA [Suspect]
     Active Substance: TETRAFERRIC TRICITRATE DECAHYDRATE
     Indication: Hyperphosphataemia
     Dosage: UNK
     Route: 065
     Dates: start: 20230302, end: 2023
  2. AURYXIA [Suspect]
     Active Substance: TETRAFERRIC TRICITRATE DECAHYDRATE
     Dosage: 1 TABLETS WITH MEALS AND SNACKS
     Route: 065
     Dates: start: 2023, end: 2023
  3. AURYXIA [Suspect]
     Active Substance: TETRAFERRIC TRICITRATE DECAHYDRATE
     Dosage: 2 TABLETS WITH MEALS AND SNACKS
     Route: 065
     Dates: start: 2023
  4. CALCIUM ACETATE [Concomitant]
     Active Substance: CALCIUM ACETATE
     Indication: Product used for unknown indication
     Dosage: UNK
     Route: 065
  5. RENAGEL [Concomitant]
     Active Substance: SEVELAMER HYDROCHLORIDE
     Indication: Product used for unknown indication
     Dosage: 800 MILLIGRAM WITH MEALS
     Route: 048
     Dates: start: 20221215, end: 202303
  6. TUMS [Concomitant]
     Active Substance: CALCIUM CARBONATE
     Indication: Hyperphosphataemia
     Dosage: 1 DOSAGE FORM WITH MEALS
     Route: 065

REACTIONS (1)
  - Blood phosphorus increased [Not Recovered/Not Resolved]

NARRATIVE: CASE EVENT DATE: 20230516
